FAERS Safety Report 8588357-1 (Version None)
Quarter: 2012Q3

REPORT INFORMATION
  Report Type: 
  Country: None (occurrence: None)
  Receive Date: 20120813
  Receipt Date: 20120801
  Transmission Date: 20120928
  Serious: Yes (Hospitalization)
  Sender: FDA-Public Use
  Company Number: US-BAYER-2012-017448

PATIENT
  Age: 38 Year
  Sex: Female
  Weight: 62.585 kg

DRUGS (20)
  1. EVENING PRIMROSE OIL [Concomitant]
     Dosage: UNK
     Dates: start: 20100101
  2. PROMETHAZINE - CODEINE [CODEINE PHOSPHATE,PROMETHAZINE HYDROCHLORI [Concomitant]
     Indication: COUGH
     Dosage: 6.25MG/10MG/5ML Q 4-6 H PRN
     Route: 048
  3. ALBUTEROL [Concomitant]
     Dosage: 1-2 PUFFS Q4 HOURS PRN
     Route: 045
  4. FLEXERIL [Concomitant]
     Dosage: 5 MG, TID
  5. CALCIUM COMPLETE [Concomitant]
     Dosage: UNK
     Dates: start: 20080101
  6. IBUPROFEN [Concomitant]
     Dosage: 800 MG, UNK
  7. DROSPIRENONE AND ETHINYL ESTRADIOL [Suspect]
     Indication: BREAST CYST
     Dosage: UNK
     Route: 048
     Dates: start: 20100407, end: 20110114
  8. RELPAX [Concomitant]
     Dosage: UNK
     Dates: start: 20060101
  9. CITALOPRAM HYDROBROMIDE [Concomitant]
     Dosage: UNK
     Dates: start: 20060101
  10. ASCORBIC ACID [Concomitant]
     Dosage: UNK
     Dates: start: 20100101
  11. VITAMIN D [Concomitant]
     Dosage: UNK
     Dates: start: 20100101
  12. HYDROCODONE BITARTRATE AND ACETAMINOPHEN [Concomitant]
     Indication: PAIN IN EXTREMITY
     Dosage: 7.5/500 1 OR 2 TABLETS EVERY 8 HOURS AS NEEDED
     Route: 048
  13. FIORICET [Concomitant]
     Dosage: UNK
     Dates: start: 20030101
  14. MULTI-VITAMIN [Concomitant]
     Dosage: UNK
     Dates: start: 20080101
  15. SUMATRIPTAN [Concomitant]
     Dosage: UNK
     Dates: start: 20030101
  16. CELEXA [Concomitant]
     Dosage: UNK
     Dates: start: 20110801
  17. SULFAMETHOXAZOLE AND TRIMETHOPRIM [Concomitant]
     Dosage: 160/180 1 DS TABLET BID FOR 10 DAYS
  18. LOVAZA [Concomitant]
     Dosage: UNK
     Dates: start: 20100101
  19. XANAX [Concomitant]
     Dosage: 0.5 1-2 EVERY 4 HOURS PRN
     Route: 048
  20. ZITHROMAX [Concomitant]
     Dosage: 250 MG 2 TODAY, THEN 1 QD
     Route: 048

REACTIONS (12)
  - PAIN [None]
  - DYSPNOEA [None]
  - CHEST PAIN [None]
  - STRESS [None]
  - DEPRESSION [None]
  - PULMONARY EMBOLISM [None]
  - GENERAL PHYSICAL HEALTH DETERIORATION [None]
  - INSOMNIA [None]
  - TENSION HEADACHE [None]
  - ANXIETY [None]
  - EMOTIONAL DISTRESS [None]
  - COUGH [None]
